FAERS Safety Report 8267179-5 (Version None)
Quarter: 2012Q2

REPORT INFORMATION
  Report Type: 
  Country: None (occurrence: None)
  Receive Date: 20120409
  Receipt Date: 20120404
  Transmission Date: 20120825
  Serious: Yes (Hospitalization, Other)
  Sender: FDA-Public Use
  Company Number: US-PFIZER INC-2012085501

PATIENT
  Sex: Male
  Weight: 67.12 kg

DRUGS (3)
  1. IBUPROFEN (ADVIL) [Suspect]
     Indication: FATIGUE
     Dosage: UNK
     Dates: start: 19971207
  2. ATENOLOL [Concomitant]
     Indication: HYPERTENSION
     Dosage: 50 MG, DAILY
  3. LIPITOR [Suspect]
     Indication: BLOOD CHOLESTEROL INCREASED
     Dosage: 40 MG, DAILY

REACTIONS (4)
  - VISION BLURRED [None]
  - SYNCOPE [None]
  - AORTIC ANEURYSM [None]
  - CARDIAC DISORDER [None]
